FAERS Safety Report 24538585 (Version 1)
Quarter: 2024Q4

REPORT INFORMATION
  Report Type: Spontaneous
  Country: CN (occurrence: CN)
  Receive Date: 20241023
  Receipt Date: 20241023
  Transmission Date: 20250115
  Serious: Yes (Other)
  Sender: ROCHE
  Company Number: CN-ROCHE-10000113031

PATIENT

DRUGS (1)
  1. XOFLUZA [Suspect]
     Active Substance: BALOXAVIR MARBOXIL
     Indication: Bacterial infection
     Route: 065

REACTIONS (4)
  - Hyperpyrexia [Recovering/Resolving]
  - Hallucination [Recovering/Resolving]
  - Intentional product misuse [Unknown]
  - Off label use [Unknown]
